FAERS Safety Report 7280876-3 (Version None)
Quarter: 2011Q1

REPORT INFORMATION
  Report Type: 
  Country: None (occurrence: None)
  Receive Date: 20110208
  Receipt Date: 20110208
  Transmission Date: 20110831
  Serious: Yes (Disabling)
  Sender: FDA-Public Use
  Company Number: None

PATIENT
  Age: 50 Year
  Sex: Female
  Weight: 63.5036 kg

DRUGS (1)
  1. TRIAD ALCOHOL PREP PAD ANTISEPTIC TRIAD DISPOSABLES, INC. [Suspect]
     Indication: INJECTION
     Dosage: ONE PAD DAILEY TRANSDERMAL
     Route: 062
     Dates: start: 20020901, end: 20110101

REACTIONS (6)
  - INJECTION SITE SWELLING [None]
  - SKIN TIGHTNESS [None]
  - INJECTION SITE ANAESTHESIA [None]
  - INJECTION SITE DISCOLOURATION [None]
  - INJECTION SITE PAIN [None]
  - ERYTHEMA [None]
